FAERS Safety Report 14512118 (Version 3)
Quarter: 2018Q2

REPORT INFORMATION
  Report Type: Spontaneous
  Country: US (occurrence: US)
  Receive Date: 20180209
  Receipt Date: 20180611
  Transmission Date: 20180711
  Serious: Yes (Disabling, Other)
  Sender: FDA-Public Use
  Company Number: US-REGENERON PHARMACEUTICALS, INC.-2018-13345

PATIENT

DRUGS (3)
  1. EYLEA [Suspect]
     Active Substance: AFLIBERCEPT
     Dosage: RIGHT EYE (OD), 6 WEEKS
     Route: 031
     Dates: start: 20151009, end: 20151009
  2. EYLEA [Suspect]
     Active Substance: AFLIBERCEPT
     Indication: MACULAR DEGENERATION
     Dosage: LEFT EYE (OS), 6 WEEKS
     Route: 031
     Dates: start: 20150929
  3. EYLEA [Suspect]
     Active Substance: AFLIBERCEPT
     Dosage: LEFT EYE (OS), 6 WEEKS
     Route: 031
     Dates: start: 20180130, end: 20180130

REACTIONS (4)
  - Vitritis [Recovered/Resolved]
  - Vitreous floaters [Recovered/Resolved]
  - Blindness transient [Recovered/Resolved]
  - Product storage error [Unknown]

NARRATIVE: CASE EVENT DATE: 20180201
